FAERS Safety Report 6899427-8 (Version None)
Quarter: 2010Q3

REPORT INFORMATION
  Report Type: 
  Country: None (occurrence: None)
  Receive Date: 20100803
  Receipt Date: 20090616
  Transmission Date: 20110219
  Serious: No
  Sender: FDA-Public Use
  Company Number: US-PFIZER INC-2009183372

PATIENT

DRUGS (2)
  1. NORVASC [Suspect]
     Indication: SCLERODERMA
  2. NITROGLYCERIN [Suspect]
     Route: 062

REACTIONS (1)
  - DRUG INEFFECTIVE FOR UNAPPROVED INDICATION [None]
